FAERS Safety Report 6567116-5 (Version None)
Quarter: 2010Q1

REPORT INFORMATION
  Report Type: 
  Country: None (occurrence: None)
  Receive Date: 20100202
  Receipt Date: 20100121
  Transmission Date: 20100710
  Serious: Yes (Other)
  Sender: FDA-Public Use
  Company Number: BE-PFIZER INC-2009313501

PATIENT
  Age: 60 Year
  Sex: Male
  Weight: 102 kg

DRUGS (14)
  1. LYRICA [Suspect]
     Indication: NEURALGIA
     Dosage: 150 MG, 2X/DAY
     Route: 048
     Dates: start: 20091215, end: 20091223
  2. LYRICA [Suspect]
     Indication: DIABETIC NEUROPATHY
  3. ALLOPURINOL [Concomitant]
  4. ASAFLOW [Concomitant]
  5. BEFACT [Concomitant]
  6. COZAAR [Concomitant]
  7. ZOCOR [Concomitant]
  8. DIAMICRON [Concomitant]
  9. RIVOTRIL [Concomitant]
  10. DILTIAZEM HYDROCHLORIDE [Concomitant]
  11. MOXONIDINE [Concomitant]
  12. LISINOPRIL [Concomitant]
  13. GLUCOPHAGE [Concomitant]
  14. ESOMEPRAZOLE [Concomitant]

REACTIONS (5)
  - DIABETIC RETINOPATHY [None]
  - INTRAOCULAR PRESSURE INCREASED [None]
  - MACULAR OEDEMA [None]
  - VISUAL ACUITY REDUCED [None]
  - VISUAL IMPAIRMENT [None]
